FAERS Safety Report 21480635 (Version 1)
Quarter: 2022Q4

REPORT INFORMATION
  Report Type: Report from Study
  Country: US (occurrence: US)
  Receive Date: 20221019
  Receipt Date: 20221019
  Transmission Date: 20230113
  Serious: Yes (Other)
  Sender: FDA-Public Use
  Company Number: US-BoehringerIngelheim-2020-BI-062126

PATIENT
  Age: 80 Year
  Sex: Male

DRUGS (3)
  1. OFEV [Suspect]
     Active Substance: NINTEDANIB
     Indication: Idiopathic pulmonary fibrosis
     Route: 048
     Dates: start: 20200827
  2. OFEV [Suspect]
     Active Substance: NINTEDANIB
     Route: 048
  3. ELIQUIS [Concomitant]
     Active Substance: APIXABAN
     Indication: Product used for unknown indication

REACTIONS (25)
  - Deafness [Unknown]
  - Weight decreased [Unknown]
  - Frequent bowel movements [Unknown]
  - Diarrhoea [Unknown]
  - Oral surgery [Unknown]
  - Hyperphagia [Unknown]
  - Post procedural haemorrhage [Unknown]
  - Ageusia [Unknown]
  - Vomiting [Unknown]
  - Gastric disorder [Unknown]
  - Hypoacusis [Unknown]
  - Flatulence [Recovering/Resolving]
  - Vomiting [Unknown]
  - Sinus disorder [Unknown]
  - Back pain [Unknown]
  - Vomiting [Recovered/Resolved]
  - Hypophagia [Unknown]
  - Eructation [Recovering/Resolving]
  - Abdominal discomfort [Unknown]
  - Decreased appetite [Unknown]
  - Muscle spasms [Unknown]
  - Nausea [Recovering/Resolving]
  - Discoloured vomit [Unknown]
  - Malaise [Unknown]
  - Sinusitis [Unknown]

NARRATIVE: CASE EVENT DATE: 20200801
